FAERS Safety Report 9216110 (Version 2)
Quarter: 2013Q2

REPORT INFORMATION
  Report Type: Spontaneous
  Country: GB (occurrence: None)
  Receive Date: 20130402
  Receipt Date: 20130405
  Transmission Date: 20140414
  Serious: Yes (Hospitalization)
  Sender: FDA-Public Use
  Company Number: AUR-APL-2013-02576

PATIENT
  Age: 72 Year
  Sex: Male

DRUGS (4)
  1. PERINDOPRIL [Suspect]
     Indication: PRODUCT USED FOR UNKNOWN INDICATION
     Dosage: STOPPED
  2. NAPROXEN (NAPROXEN) [Suspect]
     Indication: RHEUMATOID ARTHRITIS
     Dosage: 1000 MG (500 MG, 2IN 1 D)
     Route: 048
     Dates: start: 20111114, end: 20121223
  3. SULFASALAZINE [Suspect]
     Indication: RHEUMATOID ARTHRITIS
     Dosage: 500 MG,QD,PO.
     Route: 048
     Dates: start: 20121203
  4. OMEPRAZOLE(OMEPRAZOLE) [Concomitant]

REACTIONS (5)
  - Diarrhoea [None]
  - Malaise [None]
  - Renal failure acute [None]
  - Continuous haemodiafiltration [None]
  - Drug interaction [None]
